FAERS Safety Report 8311900-4 (Version None)
Quarter: 2012Q2

REPORT INFORMATION
  Report Type: 
  Country: None (occurrence: None)
  Receive Date: 20120425
  Receipt Date: 20120416
  Transmission Date: 20120825
  Serious: Yes (Hospitalization)
  Sender: FDA-Public Use
  Company Number: US-ACTELION-A-NJ2012-64464

PATIENT

DRUGS (2)
  1. COUMADIN [Concomitant]
  2. VENTAVIS [Suspect]
     Indication: PULMONARY ARTERIAL HYPERTENSION
     Dosage: UNK
     Route: 055
     Dates: start: 20120404

REACTIONS (5)
  - SNEEZING [None]
  - NASAL CONGESTION [None]
  - DYSPNOEA [None]
  - CONDITION AGGRAVATED [None]
  - MALAISE [None]
